FAERS Safety Report 6105639-3 (Version None)
Quarter: 2009Q1

REPORT INFORMATION
  Report Type: 
  Country: None (occurrence: None)
  Receive Date: 20090304
  Receipt Date: 20090304
  Transmission Date: 20090719
  Serious: Yes (Life-Threatening)
  Sender: FDA-Public Use
  Company Number: None

PATIENT
  Sex: Male
  Weight: 96.1626 kg

DRUGS (2)
  1. METHOTREXATE [Suspect]
     Indication: HAIRY CELL LEUKAEMIA
     Dosage: 4 GRAM/M2 ONE TIME IV
     Route: 042
     Dates: start: 20080808, end: 20080808
  2. CLADRIBINE [Suspect]
     Dosage: 9 MG DAILY FOR 5 DAYS IV DRIP
     Route: 041
     Dates: start: 20080810, end: 20080814

REACTIONS (6)
  - DISEASE COMPLICATION [None]
  - ELECTROLYTE IMBALANCE [None]
  - ESCHERICHIA SEPSIS [None]
  - METABOLIC ACIDOSIS [None]
  - PANCYTOPENIA [None]
  - RENAL FAILURE ACUTE [None]
